FAERS Safety Report 8685771 (Version 4)
Quarter: 2013Q2

REPORT INFORMATION
  Report Type: Report from Study
  Country: FR (occurrence: FR)
  Receive Date: 20120726
  Receipt Date: 20130415
  Transmission Date: 20140414
  Serious: Yes (Other)
  Sender: FDA-Public Use
  Company Number: PHHY2012FR062679

PATIENT
  Sex: Male
  Weight: 106 kg

DRUGS (5)
  1. LMF237 [Suspect]
     Dosage: 1 DF (1000MG METF/50MG VILDA), BID
     Dates: start: 20100711
  2. METFORMIN [Suspect]
     Dosage: 850 MG, BID
     Dates: start: 200712, end: 20100711
  3. ZOCOR [Concomitant]
     Dosage: 20 MG, QD
     Dates: start: 200711
  4. PREVISCAN [Concomitant]
     Dosage: 2.25 DF, DAILY
     Dates: start: 200711
  5. PREVISCAN [Concomitant]
     Dosage: 1 DF, DAILY

REACTIONS (4)
  - Intermittent claudication [Not Recovered/Not Resolved]
  - Diabetic complication [Unknown]
  - Necrosis of artery [Recovered/Resolved]
  - Arterial disorder [Unknown]
